FAERS Safety Report 8481141-9 (Version None)
Quarter: 2012Q3

REPORT INFORMATION
  Report Type: 
  Country: None (occurrence: None)
  Receive Date: 20120702
  Receipt Date: 20120627
  Transmission Date: 20120928
  Serious: Yes (Other)
  Sender: FDA-Public Use
  Company Number: PHHY2012CA018113

PATIENT
  Sex: Female

DRUGS (3)
  1. TAMOXIFEN CITRATE [Concomitant]
  2. ZOMETA [Suspect]
     Indication: BREAST CANCER
     Dosage: 4 MG, EVERY 4 WEEKS
     Route: 042
     Dates: start: 20120227
  3. ZOMETA [Suspect]
     Indication: METASTASES TO BONE

REACTIONS (12)
  - ARTHRITIS [None]
  - BLOOD PRESSURE SYSTOLIC INCREASED [None]
  - FATIGUE [None]
  - ARTHRALGIA [None]
  - VISION BLURRED [None]
  - URINE OUTPUT INCREASED [None]
  - SYNCOPE [None]
  - GINGIVAL INFECTION [None]
  - GINGIVAL PAIN [None]
  - PAIN [None]
  - MYALGIA [None]
  - PAIN IN JAW [None]
